FAERS Safety Report 21354067 (Version 1)
Quarter: 2022Q3

REPORT INFORMATION
  Report Type: Spontaneous
  Country: IT (occurrence: IT)
  Receive Date: 20220920
  Receipt Date: 20220920
  Transmission Date: 20221027
  Serious: Yes (Hospitalization)
  Sender: FDA-Public Use
  Company Number: None

PATIENT
  Age: 70 Year
  Sex: Male
  Weight: 80 kg

DRUGS (3)
  1. CABAZITAXEL [Suspect]
     Active Substance: CABAZITAXEL
     Indication: Prostate cancer
     Dosage: 50 MG (THREE TIMES A WEEK)
     Dates: start: 20220705, end: 20220705
  2. SILODOSIN [Concomitant]
     Active Substance: SILODOSIN
     Dosage: 8 MG/ DAY. INTAKE START DATE, LOT NUMBER AND THERAPEUTIC INDICATION ARE NOT KNOWN.
  3. OMEPRAZOLE [Concomitant]
     Active Substance: OMEPRAZOLE
     Dosage: 20 MG / DAY. INTAKE START DATE, LOT NUMBER AND THERAPEUTIC INDICATION ARE NOT KNOWN

REACTIONS (4)
  - Anaemia [Recovering/Resolving]
  - Thrombocytopenia [Recovering/Resolving]
  - Pyelonephritis [Recovering/Resolving]
  - Neutropenia [Recovering/Resolving]

NARRATIVE: CASE EVENT DATE: 20220713
